FAERS Safety Report 14782677 (Version 2)
Quarter: 2018Q2

REPORT INFORMATION
  Report Type: Report from Study
  Country: None (occurrence: US)
  Receive Date: 20180420
  Receipt Date: 20180424
  Transmission Date: 20180711
  Serious: Yes (Hospitalization, Other)
  Sender: FDA-Public Use
  Company Number: US-BAUSCH-BL-2018-010695

PATIENT
  Age: 81 Year
  Sex: Male
  Weight: 100.1 kg

DRUGS (5)
  1. CLONAZEPAM. [Concomitant]
     Active Substance: CLONAZEPAM
     Indication: AGITATION
     Dosage: AS NEEDED
     Route: 048
  2. FLUOXETINE [Concomitant]
     Active Substance: FLUOXETINE HYDROCHLORIDE
     Indication: PRODUCT USED FOR UNKNOWN INDICATION
     Route: 048
  3. CLONAZEPAM. [Concomitant]
     Active Substance: CLONAZEPAM
     Route: 048
     Dates: start: 20180301
  4. FLUOXETINE [Concomitant]
     Active Substance: FLUOXETINE HYDROCHLORIDE
     Route: 048
  5. CUPRIMINE [Suspect]
     Active Substance: PENICILLAMINE
     Indication: NEPHROLITHIASIS
     Dosage: STARTED YEARS PRIOR TO REPORT, 250MG CAPSULE, ONE CAPSULE A DAY
     Route: 048
     Dates: start: 2017

REACTIONS (5)
  - Restless legs syndrome [Unknown]
  - Depression [Unknown]
  - Influenza [Recovering/Resolving]
  - Dementia Alzheimer^s type [Unknown]
  - Anxiety [Unknown]

NARRATIVE: CASE EVENT DATE: 20170120
